FAERS Safety Report 24372448 (Version 2)
Quarter: 2024Q4

REPORT INFORMATION
  Report Type: Report from Study
  Country: BR (occurrence: BR)
  Receive Date: 20240927
  Receipt Date: 20241014
  Transmission Date: 20250115
  Serious: Yes (Hospitalization)
  Sender: EMD SERONO INC
  Company Number: BR-Merck Healthcare KGaA-2024050757

PATIENT
  Age: 43 Year
  Sex: Male

DRUGS (1)
  1. MAVENCLAD [Suspect]
     Active Substance: CLADRIBINE
     Indication: Multiple sclerosis
     Dosage: YEAR ONE MONTH ONE THERAPY, AT A DOSE OF 2 TABLETS ON DAYS 1 TO 3 AND ONE TABLETS ON DAYS 4 TO 6
     Route: 048
     Dates: start: 20240826

REACTIONS (1)
  - Drug eruption [Recovered/Resolved]

NARRATIVE: CASE EVENT DATE: 20240916
